FAERS Safety Report 5715806-6 (Version None)
Quarter: 2008Q2

REPORT INFORMATION
  Report Type: 
  Country: None (occurrence: None)
  Receive Date: 20080424
  Receipt Date: 20080421
  Transmission Date: 20081010
  Serious: Yes (Other)
  Sender: FDA-Public Use
  Company Number: DE-BRISTOL-MYERS SQUIBB COMPANY-14157143

PATIENT
  Age: 57 Year
  Sex: Female

DRUGS (6)
  1. ABILIFY [Suspect]
     Indication: PROPHYLAXIS
     Dosage: INTRUPPTED ON MAY06. RESTARTED ON JUN-2007.
     Route: 048
     Dates: start: 20051001
  2. ABILIFY [Suspect]
     Indication: DEPRESSION
     Dosage: INTRUPPTED ON MAY06. RESTARTED ON JUN-2007.
     Route: 048
     Dates: start: 20051001
  3. RISPERDAL [Suspect]
     Indication: PROPHYLAXIS
     Route: 048
     Dates: start: 20060501, end: 20070601
  4. RISPERDAL [Suspect]
     Indication: DEPRESSION
     Route: 048
     Dates: start: 20060501, end: 20070601
  5. CIPRALEX [Concomitant]
     Indication: DEPRESSION
     Route: 048
     Dates: start: 20040101, end: 20060701
  6. CYMBALTA [Concomitant]
     Indication: DEPRESSION
     Route: 048
     Dates: start: 20060701

REACTIONS (1)
  - CRYPTOGENIC ORGANISING PNEUMONIA [None]
